FAERS Safety Report 8083695-3 (Version None)
Quarter: 2012Q1

REPORT INFORMATION
  Report Type: 
  Country: None (occurrence: None)
  Receive Date: 20120127
  Receipt Date: 20110113
  Transmission Date: 20120608
  Serious: No
  Sender: FDA-Public Use
  Company Number: US-ABBOTT-11P-163-0697084-00

PATIENT
  Sex: Female
  Weight: 50.394 kg

DRUGS (3)
  1. HUMIRA [Suspect]
     Dosage: ONCE
     Dates: start: 20101201, end: 20101201
  2. HUMIRA [Suspect]
     Indication: RHEUMATOID ARTHRITIS
     Dates: start: 20100301, end: 20101001
  3. HUMIRA [Suspect]
     Dosage: ONCE
     Dates: start: 20101201, end: 20101201

REACTIONS (1)
  - INJECTION SITE PAIN [None]
